FAERS Safety Report 14509506 (Version 3)
Quarter: 2018Q1

REPORT INFORMATION
  Report Type: Spontaneous
  Country: ES (occurrence: ES)
  Receive Date: 20180209
  Receipt Date: 20180223
  Transmission Date: 20180509
  Serious: Yes (Death, Hospitalization)
  Sender: FDA-Public Use
  Company Number: ES-AMGEN-ESPSP2018018467

PATIENT
  Age: 61 Year
  Sex: Female
  Weight: 60 kg

DRUGS (1)
  1. REPATHA [Suspect]
     Active Substance: EVOLOCUMAB
     Indication: HYPERLIPIDAEMIA
     Dosage: 140 MG, Q2WK
     Route: 058
     Dates: start: 20171221, end: 201712

REACTIONS (2)
  - Meningitis pneumococcal [Fatal]
  - Upper respiratory tract infection [Unknown]

NARRATIVE: CASE EVENT DATE: 20180122
